FAERS Safety Report 23798291 (Version 3)
Quarter: 2024Q2

REPORT INFORMATION
  Report Type: Report from Study
  Country: CO (occurrence: CO)
  Receive Date: 20240430
  Receipt Date: 20240515
  Transmission Date: 20240715
  Serious: Yes (Hospitalization, Other)
  Sender: FDA-Public Use
  Company Number: CO-002147023-NVSC2024CO065365

PATIENT
  Age: 51 Year
  Sex: Female
  Weight: 87 kg

DRUGS (4)
  1. KISQALI [Suspect]
     Active Substance: RIBOCICLIB
     Indication: Hormone receptor positive HER2 negative breast cancer
     Dosage: 600 MG, QD
     Route: 048
     Dates: start: 20240227
  2. KISQALI [Suspect]
     Active Substance: RIBOCICLIB
     Dosage: UNK
     Route: 065
  3. KISQALI [Suspect]
     Active Substance: RIBOCICLIB
     Dosage: 3 DOSAGE FORM, QD
     Route: 048
     Dates: end: 20240327
  4. LETROZOLE [Concomitant]
     Active Substance: LETROZOLE
     Indication: Product used for unknown indication
     Dosage: 1 DOSAGE FORM
     Route: 065

REACTIONS (17)
  - Pyrexia [Unknown]
  - Platelet count decreased [Recovering/Resolving]
  - Malaise [Unknown]
  - Haematocrit decreased [Recovered/Resolved]
  - Swelling [Unknown]
  - White blood cell count decreased [Recovered/Resolved]
  - Decreased immune responsiveness [Unknown]
  - Syncope [Unknown]
  - Hyperhidrosis [Recovered/Resolved]
  - Vomiting [Recovered/Resolved]
  - Blood pressure decreased [Recovered/Resolved]
  - Thrombocytopenia [Unknown]
  - Abdominal distension [Unknown]
  - Oedema peripheral [Unknown]
  - Hypoaesthesia [Unknown]
  - Dizziness [Recovered/Resolved]
  - Headache [Unknown]

NARRATIVE: CASE EVENT DATE: 20240310
